FAERS Safety Report 11374538 (Version 1)
Quarter: 2015Q3

REPORT INFORMATION
  Report Type: Spontaneous
  Country: US (occurrence: US)
  Receive Date: 20150813
  Receipt Date: 20150813
  Transmission Date: 20151125
  Serious: No
  Sender: FDA-Public Use
  Company Number: US-AMGEN-USASP2015080274

PATIENT
  Age: 74 Year
  Sex: Female
  Weight: 79.37 kg

DRUGS (5)
  1. CENTRUM SILVER                     /02363801/ [Concomitant]
     Active Substance: VITAMINS
     Dosage: UNK
  2. PAIN RELIEF NOS [Concomitant]
     Active Substance: CAMPHOR (SYNTHETIC)\LEVOMENTHOL\MENTHYL SALICYLATE OR CAMPHOR (SYNTHETIC)\MENTHOL\MENTHYL SALICYLATE OR MENTHOL\MENTHYL SALICYLATE
     Dosage: UNK
  3. FOLIC ACID. [Concomitant]
     Active Substance: FOLIC ACID
     Dosage: UNK
  4. ENBREL [Suspect]
     Active Substance: ETANERCEPT
     Indication: RHEUMATOID ARTHRITIS
     Dosage: 50 MG, QWK
     Route: 058
  5. CALTRATE                           /00944201/ [Concomitant]
     Dosage: UNK

REACTIONS (1)
  - Therapeutic response decreased [Unknown]
